FAERS Safety Report 24559479 (Version 2)
Quarter: 2025Q1

REPORT INFORMATION
  Report Type: Report from Study
  Country: US (occurrence: US)
  Receive Date: 20241029
  Receipt Date: 20250114
  Transmission Date: 20250409
  Serious: Yes (Other)
  Sender: ABBVIE
  Company Number: US-ABBVIE-5977461

PATIENT
  Age: 41 Year
  Sex: Female

DRUGS (1)
  1. CREON [Suspect]
     Active Substance: PANCRELIPASE AMYLASE\PANCRELIPASE LIPASE\PANCRELIPASE PROTEASE
     Indication: Product used for unknown indication
     Route: 048
     Dates: start: 20240201

REACTIONS (5)
  - Lymphoma [Unknown]
  - Diarrhoea [Unknown]
  - Dyschezia [Unknown]
  - Nausea [Unknown]
  - Blood urine present [Unknown]

NARRATIVE: CASE EVENT DATE: 20240101
